FAERS Safety Report 19453241 (Version 1)
Quarter: 2021Q2

REPORT INFORMATION
  Report Type: Spontaneous
  Country: PT (occurrence: PT)
  Receive Date: 20210623
  Receipt Date: 20210623
  Transmission Date: 20210717
  Serious: Yes (Life-Threatening, Other)
  Sender: FDA-Public Use
  Company Number: PT-GLAXOSMITHKLINE-PTCH2021GSK039956

PATIENT
  Age: 27 Year
  Weight: 57 kg

DRUGS (3)
  1. NIQUITIN [Suspect]
     Active Substance: NICOTINE
     Indication: SMOKING CESSATION THERAPY
     Dosage: 1 DF
     Route: 062
     Dates: start: 20210521, end: 20210521
  2. TOPIRAMATO [Concomitant]
     Active Substance: TOPIRAMATE
     Indication: PRODUCT USED FOR UNKNOWN INDICATION
     Dosage: UNK
  3. ZEBINIX [Concomitant]
     Active Substance: ESLICARBAZEPINE ACETATE
     Indication: PRODUCT USED FOR UNKNOWN INDICATION
     Dosage: UNK

REACTIONS (4)
  - Ear haemorrhage [Recovered/Resolved]
  - Loss of consciousness [Recovered/Resolved]
  - Cyanosis [Recovered/Resolved]
  - Anal incontinence [Recovered/Resolved]

NARRATIVE: CASE EVENT DATE: 20210521
